FAERS Safety Report 9407830 (Version 1)
Quarter: 2013Q2

REPORT INFORMATION
  Report Type: Spontaneous
  Country: MX (occurrence: None)
  Receive Date: 20130422
  Receipt Date: 20130422
  Transmission Date: 20140414
  Serious: Yes (Other)
  Sender: FDA-Public Use
  Company Number: ENTC2013-0147

PATIENT
  Age: 83 Year
  Sex: Male

DRUGS (2)
  1. STALEVO (LEVODOPA, CARBIDOPA, ENTACAPONE) [Suspect]
     Indication: PARKINSON^S DISEASE
     Dosage: STRENGTH 150/ 37.5 / 200 MG; 2 TABLETS
     Route: 048
     Dates: start: 20091104
  2. AVODART [Concomitant]

REACTIONS (2)
  - Fall [None]
  - Dislocation of vertebra [None]
